FAERS Safety Report 10207448 (Version 2)
Quarter: 2014Q2

REPORT INFORMATION
  Report Type: Spontaneous
  Country: US (occurrence: US)
  Receive Date: 20140530
  Receipt Date: 20140530
  Transmission Date: 20141212
  Serious: No
  Sender: FDA-Public Use
  Company Number: US-BRISTOL-MYERS SQUIBB COMPANY-19478353

PATIENT
  Age: 54 Year
  Sex: Male

DRUGS (3)
  1. SUSTIVA [Suspect]
     Indication: HIV INFECTION
     Route: 048
     Dates: start: 20130704, end: 20130814
  2. MULTIVITAMIN [Concomitant]
  3. TRUVADA [Concomitant]

REACTIONS (1)
  - Rash [Recovered/Resolved]
